FAERS Safety Report 9279435 (Version 2)
Quarter: 2013Q3

REPORT INFORMATION
  Report Type: Spontaneous
  Country: US (occurrence: US)
  Receive Date: 20130508
  Receipt Date: 20130710
  Transmission Date: 20140515
  Serious: No
  Sender: FDA-Public Use
  Company Number: US-009507513-1305USA003657

PATIENT
  Age: 80 Year
  Sex: Female
  Weight: 54.42 kg

DRUGS (9)
  1. CLARITIN-D-12 [Suspect]
     Indication: EAR CONGESTION
     Dosage: 5 MG, ONCE
     Route: 048
     Dates: start: 20130420
  2. CLARITIN-D-12 [Suspect]
     Indication: NASAL CONGESTION
  3. CLARITIN-D-12 [Suspect]
     Indication: SINUS CONGESTION
  4. XALATAN [Concomitant]
     Indication: GLAUCOMA
     Dosage: UNK, UNKNOWN
  5. TIMOLOL [Concomitant]
     Indication: GLAUCOMA
     Dosage: UNK, UNKNOWN
  6. ALPHAGAN [Concomitant]
     Indication: GLAUCOMA
     Dosage: UNK, UNKNOWN
  7. TOPROL XL TABLETS [Concomitant]
     Indication: HYPERTENSION
     Dosage: UNK, UNKNOWN
  8. MAXZIDE [Concomitant]
     Indication: HYPERTENSION
     Dosage: UNK, UNKNOWN
  9. ZOCOR [Concomitant]
     Indication: BLOOD CHOLESTEROL
     Dosage: UNK, UNKNOWN

REACTIONS (4)
  - Blood pressure increased [Recovered/Resolved]
  - Insomnia [Recovered/Resolved]
  - Anxiety [Recovered/Resolved]
  - Therapeutic response unexpected [Unknown]
